FAERS Safety Report 6923511-3 (Version None)
Quarter: 2010Q3

REPORT INFORMATION
  Report Type: 
  Country: None (occurrence: None)
  Receive Date: 20100813
  Receipt Date: 20100805
  Transmission Date: 20110219
  Serious: Yes (Death, Hospitalization)
  Sender: FDA-Public Use
  Company Number: A0802195A

PATIENT
  Age: 72 Year
  Sex: Male

DRUGS (9)
  1. AVANDIA [Suspect]
     Indication: DIABETES MELLITUS
     Dosage: 8MG PER DAY
     Route: 048
     Dates: end: 20070101
  2. ALBUTEROL [Concomitant]
  3. PRECOSE [Concomitant]
  4. TOPROL-XL [Concomitant]
  5. METFORMIN HCL [Concomitant]
  6. XANAX [Concomitant]
  7. PAXIL [Concomitant]
  8. NORVASC [Concomitant]
  9. AMBIEN [Concomitant]

REACTIONS (3)
  - CARDIAC FAILURE CONGESTIVE [None]
  - CEREBROVASCULAR ACCIDENT [None]
  - RESPIRATORY FAILURE [None]
